FAERS Safety Report 9820996 (Version 1)
Quarter: 2014Q1

REPORT INFORMATION
  Report Type: Report from Study
  Country: CA (occurrence: CA)
  Receive Date: 20140116
  Receipt Date: 20140116
  Transmission Date: 20141002
  Serious: Yes (Hospitalization)
  Sender: FDA-Public Use
  Company Number: CA-BRISTOL-MYERS SQUIBB COMPANY-20017778

PATIENT
  Age: 78 Year
  Sex: Female

DRUGS (10)
  1. ORENCIA [Suspect]
     Indication: RHEUMATOID ARTHRITIS
     Dosage: 1DF=750 UNIT NOS
     Route: 042
     Dates: start: 20130705
  2. ACTONEL [Concomitant]
  3. MIRTAZAPINE [Concomitant]
  4. PRISTIQ [Concomitant]
  5. VALSARTAN [Concomitant]
  6. NEXIUM [Concomitant]
  7. BUSCOPAN [Concomitant]
  8. METHOTREXATE [Concomitant]
  9. LYRICA [Concomitant]
  10. CODEINE [Concomitant]

REACTIONS (1)
  - Myocardial infarction [Recovering/Resolving]
